FAERS Safety Report 8188555-5 (Version None)
Quarter: 2012Q1

REPORT INFORMATION
  Report Type: 
  Country: None (occurrence: None)
  Receive Date: 20120306
  Receipt Date: 20120303
  Transmission Date: 20120608
  Serious: Yes (Death)
  Sender: FDA-Public Use
  Company Number: PHHY2012MX018970

PATIENT
  Sex: Female

DRUGS (2)
  1. EXFORGE [Suspect]
     Indication: HYPERTENSION
     Dosage: 160 MG VALS, 5 MG AMLO
     Dates: start: 20120201
  2. TENORMIN [Concomitant]
     Indication: HYPERTENSION
     Dates: start: 20120201

REACTIONS (1)
  - DEATH [None]
